FAERS Safety Report 21723670 (Version 2)
Quarter: 2022Q4

REPORT INFORMATION
  Report Type: Report from Study
  Country: ES (occurrence: ES)
  Receive Date: 20221213
  Receipt Date: 20221230
  Transmission Date: 20230112
  Serious: Yes (Hospitalization)
  Sender: FDA-Public Use
  Company Number: ES-PFIZER INC-PV202200116171

PATIENT
  Age: 56 Year
  Sex: Female
  Weight: 73.5 kg

DRUGS (15)
  1. EXEMESTANE [Suspect]
     Active Substance: EXEMESTANE
     Indication: Breast cancer
     Dosage: 25 MG, DAILY
     Route: 048
     Dates: start: 20190925, end: 20201021
  2. LETROZOLE [Suspect]
     Active Substance: LETROZOLE
     Indication: Breast cancer
     Dosage: 2.5 MG, DAILY (TABLET)
     Route: 048
     Dates: start: 20181212, end: 20190924
  3. ABEMACICLIB [Suspect]
     Active Substance: ABEMACICLIB
     Indication: Breast cancer
     Dosage: 150 MG, 2X/DAY (CAPSULE)
     Route: 048
     Dates: start: 20181031, end: 20201021
  4. TAMOXIFEN [Suspect]
     Active Substance: TAMOXIFEN
     Indication: Breast cancer
     Dosage: 20 MG, DAILY (TABLET)
     Route: 048
     Dates: start: 20181031, end: 20181212
  5. EXEMESTANE [Concomitant]
     Active Substance: EXEMESTANE
     Dosage: UNK
     Dates: start: 20201021, end: 20210210
  6. TAMOXIFEN [Concomitant]
     Active Substance: TAMOXIFEN
     Dosage: UNK
     Dates: start: 20210211
  7. ACETAMINOPHEN [Concomitant]
     Active Substance: ACETAMINOPHEN
     Indication: Prophylaxis
     Dosage: UNK
     Dates: start: 19701008
  8. SCOPOLAMINE [Concomitant]
     Active Substance: SCOPOLAMINE
     Indication: Abdominal pain
     Dosage: UNK
     Dates: start: 20181212
  9. IBUPROFEN [Concomitant]
     Active Substance: IBUPROFEN
     Indication: Arthralgia
     Dosage: UNK
     Dates: start: 20190227
  10. LOPERAMIDE [Concomitant]
     Active Substance: LOPERAMIDE
     Indication: Diarrhoea
     Dosage: UNK
     Dates: start: 201901
  11. ZALDIAR [Concomitant]
     Active Substance: ACETAMINOPHEN\TRAMADOL HYDROCHLORIDE
     Indication: Musculoskeletal chest pain
     Dosage: UNK
     Dates: start: 20201021
  12. DEXKETOPROFEN TROMETAMOL [Concomitant]
     Active Substance: DEXKETOPROFEN TROMETAMOL
     Indication: Musculoskeletal chest pain
     Dosage: UNK
     Dates: start: 20201021
  13. ELIDEL [Concomitant]
     Active Substance: PIMECROLIMUS
     Indication: Alopecia
     Dosage: UNK
     Dates: start: 20210607
  14. SPIRONOLACTONE [Concomitant]
     Active Substance: SPIRONOLACTONE
     Indication: Alopecia
     Dosage: UNK
     Dates: start: 20210604
  15. MINOXIDIL [Concomitant]
     Active Substance: MINOXIDIL
     Indication: Alopecia
     Dosage: UNK
     Dates: start: 20210607

REACTIONS (1)
  - Breast necrosis [Unknown]

NARRATIVE: CASE EVENT DATE: 20221018
